FAERS Safety Report 9344695 (Version 1)
Quarter: 2013Q2

REPORT INFORMATION
  Report Type: Spontaneous
  Country: US (occurrence: None)
  Receive Date: 20130611
  Receipt Date: 20130611
  Transmission Date: 20140414
  Serious: Yes (Hospitalization)
  Sender: FDA-Public Use
  Company Number: None

PATIENT
  Age: 37 Year
  Sex: Female

DRUGS (1)
  1. RIZATRIPTAN [Suspect]
     Dates: start: 20130607, end: 20130607

REACTIONS (4)
  - Swollen tongue [None]
  - Dysphagia [None]
  - Dry mouth [None]
  - Product substitution issue [None]
